FAERS Safety Report 10076710 (Version 1)
Quarter: 2014Q2

REPORT INFORMATION
  Report Type: Spontaneous
  Country: US (occurrence: US)
  Receive Date: 20140414
  Receipt Date: 20140414
  Transmission Date: 20141212
  Serious: No
  Sender: FDA-Public Use
  Company Number: US-PFIZER INC-2014102716

PATIENT
  Age: 82 Year
  Sex: Female
  Weight: 97.51 kg

DRUGS (3)
  1. TOVIAZ [Suspect]
     Indication: HYPERTONIC BLADDER
     Dosage: 4 MG, UNK
     Dates: start: 2013
  2. TOVIAZ [Suspect]
     Dosage: 8 MG, DAILY
     Route: 048
     Dates: start: 201403
  3. NORVASC [Concomitant]
     Dosage: 5 MG, 2X/DAY

REACTIONS (3)
  - Pain in extremity [Unknown]
  - Arthralgia [Unknown]
  - Liver function test abnormal [Unknown]
